FAERS Safety Report 5379049-0 (Version None)
Quarter: 2007Q3

REPORT INFORMATION
  Report Type: 
  Country: None (occurrence: None)
  Receive Date: 20070705
  Receipt Date: 20070622
  Transmission Date: 20080115
  Serious: Yes (Disabling, Congenital Anomaly)
  Sender: FDA-Public Use
  Company Number: FR-ROCHE-504007

PATIENT
  Age: 1 Hour
  Sex: Male

DRUGS (2)
  1. RIVOTRIL [Suspect]
     Indication: ANXIETY
     Dates: end: 20061202
  2. HALDOL [Suspect]
     Dates: end: 20061202

REACTIONS (1)
  - DYSMORPHISM [None]
